FAERS Safety Report 16784509 (Version 1)
Quarter: 2019Q3

REPORT INFORMATION
  Report Type: Spontaneous
  Country: HR (occurrence: HR)
  Receive Date: 20190909
  Receipt Date: 20190909
  Transmission Date: 20191005
  Serious: Yes (Life-Threatening, Hospitalization)
  Sender: FDA-Public Use
  Company Number: HR-B.I. PHARMACEUTICALS,INC./RIDGEFIELD-2019-BI-100937

PATIENT
  Age: 78 Year
  Sex: Female

DRUGS (8)
  1. EUTHYROX [Concomitant]
     Active Substance: LEVOTHYROXINE SODIUM
     Indication: PRODUCT USED FOR UNKNOWN INDICATION
     Route: 065
  2. GLUCERNA [Concomitant]
     Active Substance: AMINO ACIDS\DEXTROSE\ELECTROLYTES NOS\SOYBEAN OIL\VITAMINS
     Indication: PRODUCT USED FOR UNKNOWN INDICATION
     Dosage: SUSTAINED RELEASE
     Route: 065
  3. GOPTEN [Concomitant]
     Active Substance: TRANDOLAPRIL
     Indication: PRODUCT USED FOR UNKNOWN INDICATION
     Route: 065
  4. ATORVOX [Concomitant]
     Active Substance: ATORVASTATIN
     Indication: PRODUCT USED FOR UNKNOWN INDICATION
     Route: 065
  5. CONCOR [Concomitant]
     Active Substance: BISOPROLOL FUMARATE
     Indication: PRODUCT USED FOR UNKNOWN INDICATION
     Route: 065
  6. PRADAXA [Suspect]
     Active Substance: DABIGATRAN ETEXILATE MESYLATE
     Indication: ATRIAL FIBRILLATION
     Dosage: PRADAXA 2X110MG
     Route: 065
     Dates: start: 20160901, end: 20190814
  7. TERTENSIF [Concomitant]
     Active Substance: INDAPAMIDE
     Indication: PRODUCT USED FOR UNKNOWN INDICATION
     Dosage: SUSTAINED RELEASE
     Route: 065
  8. INSULIN ASPART [Concomitant]
     Active Substance: INSULIN ASPART
     Indication: PRODUCT USED FOR UNKNOWN INDICATION
     Route: 065

REACTIONS (6)
  - Head injury [Unknown]
  - Subarachnoid haemorrhage [Unknown]
  - Haemorrhage intracranial [Unknown]
  - Fall [Unknown]
  - Subdural haematoma [Unknown]
  - Hemiparesis [Unknown]

NARRATIVE: CASE EVENT DATE: 20190814
